FAERS Safety Report 5068207-0 (Version None)
Quarter: 2006Q3

REPORT INFORMATION
  Report Type: 
  Country: None (occurrence: None)
  Receive Date: 20060802
  Receipt Date: 20050602
  Transmission Date: 20061208
  Serious: No
  Sender: FDA-Public Use
  Company Number: US-BRISTOL-MYERS SQUIBB COMPANY-12992319

PATIENT
  Age: 74 Year
  Sex: Male

DRUGS (8)
  1. COUMADIN [Suspect]
     Indication: COAGULOPATHY
     Dosage: 2.5MG QOD ALTERNATING WITH 5MG QOD UNTIL 4/3/05; 4/4/05: DOSE CHANGED TO 2.5MG QD
     Route: 048
  2. NAMENDA [Suspect]
     Indication: DEMENTIA ALZHEIMER'S TYPE
     Dosage: 3/17 TO 3/23/05: 5MG QD; 5MG BID 3/24 TO 3/30/05; 15MG QD 3/31 TO 4/6/05; 10 MG BID: AS OF 4/7/05
     Route: 048
     Dates: start: 20050317
  3. ACCUPRIL [Concomitant]
  4. ATENOLOL [Concomitant]
  5. CARBIDOPA AND LEVODOPA [Concomitant]
  6. HUMALOG [Concomitant]
  7. METFORMIN HYDROCHLORIDE [Concomitant]
  8. NEXIUM [Concomitant]

REACTIONS (1)
  - INTERNATIONAL NORMALISED RATIO INCREASED [None]
